FAERS Safety Report 5458350-6 (Version None)
Quarter: 2007Q3

REPORT INFORMATION
  Report Type: 
  Country: None (occurrence: None)
  Receive Date: 20070919
  Receipt Date: 20070907
  Transmission Date: 20080115
  Serious: Yes (Death)
  Sender: FDA-Public Use
  Company Number: HQWYE101911SEP07

PATIENT
  Age: 68 Year
  Sex: Female

DRUGS (2)
  1. TYGACIL [Suspect]
     Dosage: 100MG INITIALLY : 50 MG Q 12 HOURS
     Route: 042
     Dates: start: 20070813, end: 20070819
  2. FLUCONAZOLE [Concomitant]
     Dosage: UNKNOWN

REACTIONS (2)
  - HEPATIC ENZYME INCREASED [None]
  - HEPATIC FAILURE [None]
